FAERS Safety Report 9075826 (Version 1)
Quarter: 2013Q1

REPORT INFORMATION
  Report Type: Report from Study
  Country: US (occurrence: US)
  Receive Date: 20130129
  Receipt Date: 20130129
  Transmission Date: 20140127
  Serious: No
  Sender: FDA-Public Use
  Company Number: US-ABBOTT-12P-163-0939496-00

PATIENT
  Sex: Male

DRUGS (3)
  1. HUMIRA 40 MG/0.8 ML PEN [Suspect]
     Indication: PSORIASIS
     Dates: start: 20120415, end: 20120415
  2. HUMIRA 40 MG/0.8 ML PEN [Suspect]
     Dates: start: 20120422, end: 20120422
  3. HUMIRA 40 MG/0.8 ML PEN [Suspect]

REACTIONS (4)
  - Decreased appetite [Recovering/Resolving]
  - Pain [Recovering/Resolving]
  - Fatigue [Recovering/Resolving]
  - Discomfort [Recovering/Resolving]
